FAERS Safety Report 12624467 (Version 5)
Quarter: 2017Q2

REPORT INFORMATION
  Report Type: Report from Study
  Country: JP (occurrence: JP)
  Receive Date: 20160805
  Receipt Date: 20170526
  Transmission Date: 20170830
  Serious: Yes (Other)
  Sender: FDA-Public Use
  Company Number: JP-UCBSA-2016028534

PATIENT
  Age: 57 Year
  Sex: Female
  Weight: 59 kg

DRUGS (7)
  1. SELBEX [Concomitant]
     Active Substance: TEPRENONE
     Indication: PROPHYLAXIS
     Dosage: 150 MG
     Route: 048
  2. LENDORMIN [Concomitant]
     Active Substance: BROTIZOLAM
     Indication: PROPHYLAXIS
     Dosage: 0.25 MG
     Route: 048
  3. SOLETON [Concomitant]
     Active Substance: ZALTOPROFEN
     Indication: RHEUMATOID ARTHRITIS
     Dosage: 240 MG, ONCE DAILY (QD)
     Route: 048
     Dates: end: 20160611
  4. LOXONIN [Concomitant]
     Active Substance: LOXOPROFEN SODIUM
     Indication: RHEUMATOID ARTHRITIS
     Dosage: 100 MG
     Route: 061
  5. HYDROCORTISONE. [Concomitant]
     Active Substance: HYDROCORTISONE
     Indication: OCCULT BLOOD
     Dosage: UNK
  6. CERTOLIZUMAB PEGOL RA [Suspect]
     Active Substance: CERTOLIZUMAB PEGOL
     Indication: RHEUMATOID ARTHRITIS
     Dosage: 400 MG, EV 4 WEEKS
     Route: 058
     Dates: start: 20150611, end: 20160614
  7. FEXOFENADINE HYDROCHLORIDE. [Concomitant]
     Active Substance: FEXOFENADINE HYDROCHLORIDE
     Indication: FACE OEDEMA
     Dosage: UNK

REACTIONS (4)
  - Face oedema [Recovered/Resolved]
  - Constipation [Unknown]
  - Eosinophilia [Recovering/Resolving]
  - Occult blood positive [Recovering/Resolving]

NARRATIVE: CASE EVENT DATE: 20160605
